FAERS Safety Report 8328167-3 (Version None)
Quarter: 2012Q2

REPORT INFORMATION
  Report Type: 
  Country: None (occurrence: None)
  Receive Date: 20120502
  Receipt Date: 20120501
  Transmission Date: 20120825
  Serious: No
  Sender: FDA-Public Use
  Company Number: PHEH2012US009164

PATIENT
  Sex: Female

DRUGS (10)
  1. LEVOXYL [Concomitant]
  2. SANDOSTATIN [Concomitant]
  3. VITAMIN TAB [Concomitant]
  4. ASPIRIN [Concomitant]
  5. CALCITONIN S [Concomitant]
  6. PRO-AIR (PROCATEROL HYDROCHLORIDE) [Concomitant]
  7. TASIGNA [Suspect]
     Dosage: 150 MG, QD
     Route: 048
     Dates: start: 20120403
  8. TOBRADEX [Concomitant]
  9. VITAMIN D [Concomitant]
  10. LORATADINE [Concomitant]

REACTIONS (1)
  - DRUG ADMINISTRATION ERROR [None]
